FAERS Safety Report 4340149-5 (Version None)
Quarter: 2004Q2

REPORT INFORMATION
  Report Type: 
  Country: None (occurrence: None)
  Receive Date: 20040416
  Receipt Date: 20040416
  Transmission Date: 20050107
  Serious: Yes (Hospitalization)
  Sender: FDA-Public Use
  Company Number: None

PATIENT
  Age: 61 Year
  Sex: Female
  Weight: 54 kg

DRUGS (9)
  1. PROCRIT 40, 000/ML AMGEN [Suspect]
     Indication: ANAEMIA
     Dosage: 24, 000 SQ QW
     Route: 058
     Dates: start: 20040212, end: 20040218
  2. PROCRIT 40, 000/ML AMGEN [Suspect]
     Indication: CHEMOTHERAPY
     Dosage: 24, 000 SQ QW
     Route: 058
     Dates: start: 20040212, end: 20040218
  3. XRT [Concomitant]
  4. TAXOTERE [Concomitant]
  5. ANZEMET [Concomitant]
  6. DECADRON [Concomitant]
  7. PRILOSEC [Concomitant]
  8. INSULIN [Concomitant]
  9. NEULASTA [Concomitant]

REACTIONS (5)
  - DEHYDRATION [None]
  - DIZZINESS [None]
  - LOSS OF CONSCIOUSNESS [None]
  - PNEUMONIA [None]
  - SYNCOPE [None]
